FAERS Safety Report 7506658-2 (Version None)
Quarter: 2011Q2

REPORT INFORMATION
  Report Type: 
  Country: None (occurrence: None)
  Receive Date: 20110526
  Receipt Date: 20110516
  Transmission Date: 20111010
  Serious: Yes (Disabling, Other)
  Sender: FDA-Public Use
  Company Number: CA-JNJFOC-20110502321

PATIENT
  Sex: Female
  Weight: 40.82 kg

DRUGS (8)
  1. GALANTAMINE HYDROBROMIDE [Suspect]
     Dosage: FOR 1 MONTH
     Route: 048
     Dates: start: 20040901
  2. RABEPRAZOLE SODIUM [Concomitant]
     Indication: GASTROOESOPHAGEAL REFLUX DISEASE
     Route: 048
     Dates: start: 20051217
  3. GALANTAMINE HYDROBROMIDE [Suspect]
     Indication: DEMENTIA ALZHEIMER'S TYPE
     Route: 048
     Dates: start: 20051128
  4. MEMANTINE HYDROCHLORIDE [Concomitant]
     Indication: DEMENTIA ALZHEIMER'S TYPE
     Route: 048
     Dates: start: 20060808
  5. GALANTAMINE HYDROBROMIDE [Suspect]
     Route: 048
     Dates: start: 20060301
  6. RISPERDAL [Concomitant]
     Indication: AGITATION
     Dosage: 0.25 MG MORNING AND 0.5MG AT BED TIME
     Route: 048
     Dates: start: 20060209
  7. RISPERDAL [Concomitant]
     Indication: HALLUCINATION
     Dosage: 0.25 MG MORNING AND 0.5MG AT BED TIME
     Route: 048
     Dates: start: 20060209
  8. TRAZODONE HCL [Concomitant]
     Indication: PRODUCT USED FOR UNKNOWN INDICATION
     Route: 065

REACTIONS (9)
  - APHASIA [None]
  - MOANING [None]
  - HALLUCINATION [None]
  - RESTLESSNESS [None]
  - GAIT DISTURBANCE [None]
  - DEMENTIA ALZHEIMER'S TYPE [None]
  - ARTHROPATHY [None]
  - COGNITIVE DISORDER [None]
  - DRUG DOSE OMISSION [None]
